FAERS Safety Report 5819378-7 (Version None)
Quarter: 2008Q3

REPORT INFORMATION
  Report Type: 
  Country: None (occurrence: None)
  Receive Date: 20080723
  Receipt Date: 20080710
  Transmission Date: 20090109
  Serious: Yes (Hospitalization, Disabling)
  Sender: FDA-Public Use
  Company Number: IE-ASTRAZENECA-2008GB01047

PATIENT
  Age: 16 Year
  Sex: Male
  Weight: 77.7 kg

DRUGS (6)
  1. SEROQUEL [Suspect]
     Indication: BIPOLAR DISORDER
     Route: 048
     Dates: start: 20070126
  2. PRIADEL [Interacting]
     Indication: BIPOLAR DISORDER
     Route: 048
     Dates: start: 20061230
  3. PRIADEL [Interacting]
     Route: 048
  4. MINOCYCLINE HCL [Interacting]
     Indication: ACNE
     Route: 065
  5. KEMADRIN [Concomitant]
     Indication: BIPOLAR DISORDER
     Dosage: 5 MG
     Route: 048
     Dates: start: 20061101
  6. HALOPERIDOL [Concomitant]
     Indication: BIPOLAR DISORDER
     Dosage: 2.5 MG
     Route: 048
     Dates: start: 20080526

REACTIONS (2)
  - DRUG INTERACTION [None]
  - DRUG LEVEL DECREASED [None]
